FAERS Safety Report 6141429-3 (Version None)
Quarter: 2009Q1

REPORT INFORMATION
  Report Type: 
  Country: None (occurrence: None)
  Receive Date: 20090331
  Receipt Date: 20090323
  Transmission Date: 20090719
  Serious: Yes (Other)
  Sender: FDA-Public Use
  Company Number: 2009SP006573

PATIENT
  Age: 66 Year
  Sex: Female
  Weight: 79.4 kg

DRUGS (9)
  1. CLARITIN [Suspect]
     Indication: RHINITIS
  2. REACTINE (CETIRIZINE HYDROCHLORIDE) (CETIRIZINE HYDROCHLORIDE) [Suspect]
     Indication: RHINITIS
     Dosage: 10 MG;PO
     Route: 048
     Dates: start: 20080401
  3. MICARDIS [Concomitant]
  4. HYDROCHLOROTHIAZIDE [Concomitant]
  5. VITAMIN D [Concomitant]
  6. DIDRONEL [Concomitant]
  7. ENTROPHEN [Concomitant]
  8. LIPITOR [Concomitant]
  9. ZOPLICONE [Concomitant]

REACTIONS (1)
  - HYPOAESTHESIA [None]
